FAERS Safety Report 7629103-5 (Version None)
Quarter: 2011Q3

REPORT INFORMATION
  Report Type: 
  Country: None (occurrence: None)
  Receive Date: 20110722
  Receipt Date: 20110722
  Transmission Date: 20111222
  Serious: Yes (Other)
  Sender: FDA-Public Use
  Company Number: None

PATIENT
  Age: 28 Year
  Sex: Female
  Weight: 136.07 kg

DRUGS (1)
  1. PRISTIQ [Suspect]
     Indication: DEPRESSION
     Dosage: 50 MG
     Route: 048
     Dates: start: 20110603, end: 20110718

REACTIONS (9)
  - WITHDRAWAL SYNDROME [None]
  - DEPRESSION [None]
  - THINKING ABNORMAL [None]
  - NAUSEA [None]
  - CONDITION AGGRAVATED [None]
  - DIZZINESS [None]
  - DRUG INEFFECTIVE [None]
  - MOBILITY DECREASED [None]
  - DECREASED ACTIVITY [None]
